FAERS Safety Report 5688582-3 (Version None)
Quarter: 2008Q1

REPORT INFORMATION
  Report Type: 
  Country: None (occurrence: None)
  Receive Date: 20080331
  Receipt Date: 20080325
  Transmission Date: 20080703
  Serious: Yes (Disabling)
  Sender: FDA-Public Use
  Company Number: FR-AVENTIS-200114793FR

PATIENT
  Age: 28 Year
  Sex: Female

DRUGS (3)
  1. CLOMID [Suspect]
     Indication: INFERTILITY
     Route: 048
     Dates: start: 19950201, end: 19950228
  2. VACCIN GENHEVAC B PASTEUR [Suspect]
     Route: 030
     Dates: start: 19950201, end: 19950201
  3. VACCIN GENHEVAC B PASTEUR [Suspect]
     Route: 030
     Dates: start: 19950301, end: 19950301

REACTIONS (1)
  - MULTIPLE SCLEROSIS [None]
